FAERS Safety Report 9307516 (Version 1)
Quarter: 2013Q2

REPORT INFORMATION
  Report Type: Spontaneous
  Country: FR (occurrence: FR)
  Receive Date: 20130524
  Receipt Date: 20130524
  Transmission Date: 20140414
  Serious: Yes (Other)
  Sender: FDA-Public Use
  Company Number: FR-JNJFOC-20130512467

PATIENT
  Age: 14 Year
  Sex: Male

DRUGS (3)
  1. REMICADE [Suspect]
     Indication: COLITIS ULCERATIVE
     Dosage: TOTAL DOSE: 250 MG; SECOND DOSE
     Route: 042
  2. REMICADE [Suspect]
     Indication: COLITIS ULCERATIVE
     Dosage: TOTAL DOSE: 250 MG, THIRD DOSE
     Route: 042
  3. REMICADE [Suspect]
     Indication: COLITIS ULCERATIVE
     Dosage: TOTAL DOSE: 250 MG
     Route: 042

REACTIONS (4)
  - Anaphylactic reaction [Unknown]
  - Bronchospasm [Recovered/Resolved]
  - Angioedema [Recovered/Resolved]
  - Infusion related reaction [Unknown]
